FAERS Safety Report 15315833 (Version 1)
Quarter: 2018Q3

REPORT INFORMATION
  Report Type: Spontaneous
  Country: US (occurrence: US)
  Receive Date: 20180824
  Receipt Date: 20180824
  Transmission Date: 20181010
  Serious: No
  Sender: FDA-Public Use
  Company Number: US-009507513-1807USA011944

PATIENT
  Age: 30 Year
  Sex: Male

DRUGS (4)
  1. ZOCOR [Suspect]
     Active Substance: SIMVASTATIN
     Indication: LIPIDOSIS
     Dosage: UNK
     Route: 048
  2. CHENODIOL. [Concomitant]
     Active Substance: CHENODIOL
     Indication: LIPIDOSIS
     Dosage: 250 MG, BID
  3. ZOCOR [Suspect]
     Active Substance: SIMVASTATIN
     Indication: XANTHOMATOSIS
  4. CHENODIOL. [Concomitant]
     Active Substance: CHENODIOL
     Dosage: 500 MG, BID

REACTIONS (1)
  - Off label use [Unknown]
